FAERS Safety Report 5376254-4 (Version None)
Quarter: 2007Q3

REPORT INFORMATION
  Report Type: 
  Country: None (occurrence: None)
  Receive Date: 20070702
  Receipt Date: 20070621
  Transmission Date: 20080115
  Serious: Yes (Death, Hospitalization)
  Sender: FDA-Public Use
  Company Number: DE-ROCHE-502907

PATIENT
  Age: 70 Year
  Sex: Female
  Weight: 85 kg

DRUGS (3)
  1. CAPECITABINE [Suspect]
     Dosage: ACTUAL DOSE  =  4000MG DAILY DAYS 1-14, EVERY THREE WEEKS
     Route: 065
     Dates: start: 20070322, end: 20070402
  2. BONDRONAT [Concomitant]
     Dates: start: 20051020
  3. ARANESP [Concomitant]
     Dates: start: 20051020

REACTIONS (4)
  - ANAEMIA [None]
  - DIARRHOEA [None]
  - DISEASE PROGRESSION [None]
  - FATIGUE [None]
